FAERS Safety Report 5250524-2 (Version None)
Quarter: 2007Q1

REPORT INFORMATION
  Report Type: 
  Country: None (occurrence: None)
  Receive Date: 20070223
  Receipt Date: 20070209
  Transmission Date: 20070707
  Serious: Yes (Hospitalization)
  Sender: FDA-Public Use
  Company Number: 236364

PATIENT
  Age: 59 Year
  Sex: Male

DRUGS (2)
  1. RAPTIVA [Suspect]
     Indication: PSORIASIS
     Dosage: 0.4 MG/KG, 1/WEEK,
     Dates: start: 20060710
  2. GLIBOMET (GLYBURIDE, METFORMIN) [Suspect]
     Indication: DIABETES MELLITUS
     Dosage: 200 MG, QD,
     Dates: start: 20010501

REACTIONS (1)
  - HEMIANOPIA [None]
